FAERS Safety Report 7729899-8 (Version None)
Quarter: 2011Q3

REPORT INFORMATION
  Report Type: 
  Country: None (occurrence: None)
  Receive Date: 20110831
  Receipt Date: 20110819
  Transmission Date: 20111222
  Serious: Yes (Other)
  Sender: FDA-Public Use
  Company Number: 1000022964

PATIENT
  Age: 90 Year
  Sex: Female

DRUGS (1)
  1. NEBIVOLOL HCL [Suspect]
     Dosage: 1.25 MG (1.25 MG, 1 IN 1 D)
     Dates: start: 20110714

REACTIONS (1)
  - CONFUSIONAL STATE [None]
